FAERS Safety Report 16235475 (Version 2)
Quarter: 2019Q4

REPORT INFORMATION
  Report Type: Spontaneous
  Country: US (occurrence: US)
  Receive Date: 20190424
  Receipt Date: 20191209
  Transmission Date: 20200122
  Serious: Yes (Death, Other)
  Sender: FDA-Public Use
  Company Number: US-ASTRAZENECA-2019SE09952

PATIENT
  Age: 21169 Day
  Sex: Female
  Weight: 62.1 kg

DRUGS (29)
  1. NEXIUM 24HR [Suspect]
     Active Substance: ESOMEPRAZOLE MAGNESIUM
     Route: 048
  2. PRILOSEC OTC [Suspect]
     Active Substance: OMEPRAZOLE MAGNESIUM
     Route: 048
  3. LIPITOR [Concomitant]
     Active Substance: ATORVASTATIN CALCIUM
     Route: 048
  4. METOPROLOL. [Concomitant]
     Active Substance: METOPROLOL
     Route: 048
  5. ARANESP [Concomitant]
     Active Substance: DARBEPOETIN ALFA
  6. ONDANSETRON [Concomitant]
     Active Substance: ONDANSETRON
     Dosage: 4 MG
     Dates: start: 20130102
  7. LORATADIN [Concomitant]
     Active Substance: LORATADINE
     Dates: start: 20130327
  8. SUBLIMAZE [Concomitant]
     Active Substance: FENTANYL CITRATE
  9. VITAMIN D [Concomitant]
     Active Substance: VITAMIN D NOS
  10. BUMEX [Concomitant]
     Active Substance: BUMETANIDE
     Route: 048
  11. ZOLOFT [Concomitant]
     Active Substance: SERTRALINE HYDROCHLORIDE
     Route: 048
  12. COZAAR [Concomitant]
     Active Substance: LOSARTAN POTASSIUM
     Dosage: 25.0MG UNKNOWN
     Route: 048
  13. DEXTROSE. [Concomitant]
     Active Substance: DEXTROSE
     Dates: start: 20140818
  14. PRILOSEC OTC [Suspect]
     Active Substance: OMEPRAZOLE MAGNESIUM
     Dosage: GENERIC
     Route: 048
     Dates: start: 20130207
  15. ELAVIL [Concomitant]
     Active Substance: AMITRIPTYLINE HYDROCHLORIDE
     Dosage: 50.0MG UNKNOWN
     Route: 048
  16. OXYCODONE [Concomitant]
     Active Substance: OXYCODONE
     Dosage: 5-325 MG DAILY
     Route: 048
  17. ALBUTEROL. [Concomitant]
     Active Substance: ALBUTEROL
     Dosage: TAKE 2 PUFFS BY INHALATION
  18. COLACE [Concomitant]
     Active Substance: DOCUSATE SODIUM
     Route: 048
  19. ADVAIR HFA [Concomitant]
     Active Substance: FLUTICASONE PROPIONATE\SALMETEROL XINAFOATE
     Route: 048
  20. POTASSIUM CHLORIDE. [Concomitant]
     Active Substance: POTASSIUM CHLORIDE
     Route: 048
  21. LOVENOX [Concomitant]
     Active Substance: ENOXAPARIN SODIUM
     Dates: start: 20140818
  22. AMOXICILLIN. [Concomitant]
     Active Substance: AMOXICILLIN
     Dates: start: 20130102
  23. LISINOPRIL. [Concomitant]
     Active Substance: LISINOPRIL
     Dates: start: 20130405
  24. LANTUS [Concomitant]
     Active Substance: INSULIN GLARGINE
  25. THERAGRAN [Concomitant]
     Active Substance: VITAMINS
     Dosage: 400.0UG UNKNOWN
     Route: 048
  26. ACETAMINOPHEN/TYLENOL [Concomitant]
     Dosage: 500.0MG UNKNOWN
     Route: 048
     Dates: start: 20140818
  27. GLEEVEC [Concomitant]
     Active Substance: IMATINIB MESYLATE
  28. TRILIPIX [Concomitant]
     Active Substance: FENOFIBRIC ACID
     Route: 048
  29. LASIX [Concomitant]
     Active Substance: FUROSEMIDE

REACTIONS (5)
  - Death [Fatal]
  - Acute kidney injury [Unknown]
  - Renal failure [Unknown]
  - Chronic kidney disease [Unknown]
  - Rebound acid hypersecretion [Unknown]

NARRATIVE: CASE EVENT DATE: 20131216
